FAERS Safety Report 16858507 (Version 1)
Quarter: 2019Q3

REPORT INFORMATION
  Report Type: Spontaneous
  Country: IT (occurrence: IT)
  Receive Date: 20190926
  Receipt Date: 20190926
  Transmission Date: 20191005
  Serious: Yes (Other)
  Sender: FDA-Public Use
  Company Number: IT-009507513-1909ITA008143

PATIENT
  Age: 45 Year
  Sex: Male

DRUGS (1)
  1. KEYTRUDA [Suspect]
     Active Substance: PEMBROLIZUMAB
     Indication: LUNG NEOPLASM MALIGNANT
     Dosage: 1ST INFUSION 1ST LINE
     Dates: start: 2019, end: 2019

REACTIONS (2)
  - Acute respiratory distress syndrome [Unknown]
  - Pneumonia [Unknown]

NARRATIVE: CASE EVENT DATE: 2019
